FAERS Safety Report 16757045 (Version 2)
Quarter: 2021Q1

REPORT INFORMATION
  Report Type: Report from Study
  Country: US (occurrence: US)
  Receive Date: 20190829
  Receipt Date: 20210225
  Transmission Date: 20210419
  Serious: Yes (Death, Other)
  Sender: FDA-Public Use
  Company Number: US-JNJFOC-20190827466

PATIENT

DRUGS (8)
  1. RITUXIMAB. [Suspect]
     Active Substance: RITUXIMAB
     Indication: DIFFUSE LARGE B-CELL LYMPHOMA
     Dosage: ON DAY 1, 6 CYCLES
     Route: 065
  2. DOXORUBICIN HYDROCHLORIDE. [Suspect]
     Active Substance: DOXORUBICIN HYDROCHLORIDE
     Indication: DIFFUSE LARGE B-CELL LYMPHOMA
     Dosage: ON DAY 1, 6 CYCLES
     Route: 065
  3. PREDNISOLONE. [Suspect]
     Active Substance: PREDNISOLONE
     Indication: DIFFUSE LARGE B-CELL LYMPHOMA
     Dosage: ON DAY 1?5, 6 CYCLES
     Route: 065
  4. VINCRISTINE [Suspect]
     Active Substance: VINCRISTINE
     Indication: DIFFUSE LARGE B-CELL LYMPHOMA
     Dosage: ON DAY 1, 6 CYCLES
     Route: 065
  5. G?CSF [Concomitant]
     Active Substance: GRANULOCYTE COLONY-STIMULATING FACTOR NOS
     Indication: PROPHYLAXIS
     Route: 065
  6. LENALIDOMIDE [Suspect]
     Active Substance: LENALIDOMIDE
     Indication: DIFFUSE LARGE B-CELL LYMPHOMA
     Dosage: DAYS 1?10 OF EACH CYCLE
     Route: 065
  7. CYCLOPHOSPHAMIDE. [Suspect]
     Active Substance: CYCLOPHOSPHAMIDE
     Indication: DIFFUSE LARGE B-CELL LYMPHOMA
     Dosage: ON DAY 1, 6 CYCLES
     Route: 065
  8. ASPRIN [Concomitant]
     Active Substance: ASPIRIN
     Indication: THROMBOSIS PROPHYLAXIS
     Route: 065

REACTIONS (16)
  - Pneumonia [Fatal]
  - Acute respiratory distress syndrome [Fatal]
  - Hypokalaemia [Unknown]
  - Muscular weakness [Unknown]
  - Product use in unapproved indication [Unknown]
  - Off label use [Unknown]
  - Hypophosphataemia [Unknown]
  - Hyponatraemia [Unknown]
  - Embolism [Unknown]
  - Fatigue [Unknown]
  - Sepsis [Fatal]
  - Thrombocytopenia [Unknown]
  - Neutropenia [Unknown]
  - Febrile neutropenia [Fatal]
  - Rash maculo-papular [Unknown]
  - Anaemia [Unknown]
